FAERS Safety Report 7362305-4 (Version None)
Quarter: 2011Q1

REPORT INFORMATION
  Report Type: 
  Country: None (occurrence: None)
  Receive Date: 20110318
  Receipt Date: 20110309
  Transmission Date: 20110831
  Serious: Yes (Hospitalization)
  Sender: FDA-Public Use
  Company Number: GB-ASTRAZENECA-2011SE13169

PATIENT
  Age: 82 Year
  Sex: Male

DRUGS (5)
  1. BICALUTAMIDE [Suspect]
     Indication: PROPHYLAXIS
     Route: 048
     Dates: start: 20110217, end: 20110225
  2. GOSERELIN [Concomitant]
     Indication: PROPHYLAXIS
     Dates: start: 20110217
  3. BICALUTAMIDE [Suspect]
     Indication: TUMOUR FLARE
     Route: 048
     Dates: start: 20110217, end: 20110225
  4. THIAMINE [Concomitant]
     Dates: start: 20110120
  5. VITAMIN B COMPOUND STRONG [Concomitant]
     Dates: start: 20110120

REACTIONS (3)
  - LIVER FUNCTION TEST ABNORMAL [None]
  - JAUNDICE CHOLESTATIC [None]
  - PRURITUS [None]
